FAERS Safety Report 9577334 (Version 1)
Quarter: 2013Q4

REPORT INFORMATION
  Report Type: Spontaneous
  Country: US (occurrence: US)
  Receive Date: 20131001
  Receipt Date: 20131001
  Transmission Date: 20140711
  Serious: No
  Sender: FDA-Public Use
  Company Number: US-AMGEN-USASP2013007809

PATIENT
  Sex: Female
  Weight: 79.82 kg

DRUGS (3)
  1. ENBREL [Suspect]
     Indication: PRODUCT USED FOR UNKNOWN INDICATION
     Dosage: 50 MG, QWK
     Route: 058
     Dates: start: 2006
  2. LOESTRIN [Concomitant]
     Dosage: UNK
  3. SYNTHROID [Concomitant]
     Dosage: 137 MUG, UNK

REACTIONS (1)
  - Therapeutic response decreased [Unknown]
